FAERS Safety Report 24210780 (Version 1)
Quarter: 2024Q3

REPORT INFORMATION
  Report Type: Report from Study
  Country: US (occurrence: None)
  Receive Date: 20240814
  Receipt Date: 20240814
  Transmission Date: 20241016
  Serious: Yes (Other)
  Sender: ASTRAZENECA
  Company Number: 2024A179053

PATIENT
  Age: 77 Year
  Sex: Female

DRUGS (1)
  1. FARXIGA [Suspect]
     Active Substance: DAPAGLIFLOZIN PROPANEDIOL
     Route: 048

REACTIONS (7)
  - Heart valve incompetence [Unknown]
  - Cerebrovascular accident [Recovering/Resolving]
  - Carotid artery occlusion [Unknown]
  - Loss of consciousness [Recovered/Resolved]
  - Balance disorder [Unknown]
  - Electrocardiogram abnormal [Unknown]
  - Vertigo [Recovered/Resolved]

NARRATIVE: CASE EVENT DATE: 20230101
